FAERS Safety Report 24801149 (Version 1)
Quarter: 2025Q1

REPORT INFORMATION
  Report Type: Report from Study
  Country: US (occurrence: US)
  Receive Date: 20250102
  Receipt Date: 20250102
  Transmission Date: 20250409
  Serious: Yes (Hospitalization)
  Sender: ORPHAZYME
  Company Number: US-ZEVRA DENMARK A/S-ORP-000507

PATIENT
  Age: 21 Year
  Sex: Female
  Weight: 66 kg

DRUGS (7)
  1. ARIMOCLOMOL CITRATE [Suspect]
     Active Substance: ARIMOCLOMOL CITRATE
     Indication: Niemann-Pick disease
     Dosage: 200 MILLIGRAM, TID
     Route: 048
     Dates: start: 20201013
  2. TEGRETOL [Concomitant]
     Active Substance: CARBAMAZEPINE
     Indication: Seizure
     Route: 048
     Dates: start: 20190619
  3. MONTELUKAST [Concomitant]
     Active Substance: MONTELUKAST
     Indication: Hypersensitivity
     Dosage: 1 TABLET, QD
     Route: 048
     Dates: start: 2019
  4. CLARITIN [Concomitant]
     Active Substance: LORATADINE
     Indication: Hypersensitivity
     Dosage: 1 TABLET, QD
     Route: 048
     Dates: start: 2019
  5. DEPO-PROVERA [Concomitant]
     Active Substance: MEDROXYPROGESTERONE ACETATE
     Indication: Contraception
     Route: 030
     Dates: start: 20170705
  6. LAMICTAL [Concomitant]
     Active Substance: LAMOTRIGINE
     Indication: Seizure
     Dosage: 250 MG BID
     Route: 048
     Dates: start: 20220912
  7. LACOSAMIDE [Concomitant]
     Active Substance: LACOSAMIDE
     Indication: Seizure prophylaxis
     Dates: start: 20240913

REACTIONS (9)
  - Cholelithiasis [Unknown]
  - Urinary tract infection [Unknown]
  - Pneumonia aspiration [Recovered/Resolved]
  - Abdominal abscess [Recovered/Resolved]
  - Abdominal abscess [Not Recovered/Not Resolved]
  - Intestinal obstruction [Recovered/Resolved]
  - Sepsis [Unknown]
  - Hypotension [Recovered/Resolved]
  - Vomiting [Unknown]

NARRATIVE: CASE EVENT DATE: 20240830
